FAERS Safety Report 21831284 (Version 6)
Quarter: 2025Q1

REPORT INFORMATION
  Report Type: Spontaneous
  Country: US (occurrence: US)
  Receive Date: 20230106
  Receipt Date: 20250213
  Transmission Date: 20250409
  Serious: No
  Sender: PFIZER
  Company Number: US-PFIZER INC-PV202300002430

PATIENT
  Age: 74 Year
  Sex: Female
  Weight: 72.562 kg

DRUGS (1)
  1. EUCRISA [Suspect]
     Active Substance: CRISABOROLE
     Indication: Dyshidrotic eczema
     Route: 061

REACTIONS (2)
  - Blood pressure increased [Unknown]
  - Off label use [Unknown]
